FAERS Safety Report 19862149 (Version 7)
Quarter: 2022Q1

REPORT INFORMATION
  Report Type: Report from Study
  Country: US (occurrence: US)
  Receive Date: 20210921
  Receipt Date: 20220201
  Transmission Date: 20220423
  Serious: No
  Sender: FDA-Public Use
  Company Number: NVSC2021US213609

PATIENT
  Sex: Female

DRUGS (1)
  1. PIQRAY [Suspect]
     Active Substance: ALPELISIB
     Indication: Product used for unknown indication
     Dosage: UNK
     Route: 065

REACTIONS (7)
  - Incorrect dose administered [Unknown]
  - Gait disturbance [Unknown]
  - Fungal infection [Unknown]
  - Illness [Unknown]
  - Dehydration [Unknown]
  - Abdominal discomfort [Unknown]
  - Asthenia [Unknown]
